FAERS Safety Report 17266586 (Version 2)
Quarter: 2020Q2

REPORT INFORMATION
  Report Type: Spontaneous
  Country: US (occurrence: US)
  Receive Date: 20200114
  Receipt Date: 20200601
  Transmission Date: 20200713
  Serious: Yes (Hospitalization, Other)
  Sender: FDA-Public Use
  Company Number: US-GLAXOSMITHKLINE-US2020GSK006148

PATIENT
  Sex: Female

DRUGS (1)
  1. INCRUSE ELLIPTA [Suspect]
     Active Substance: UMECLIDINIUM BROMIDE
     Indication: PRODUCT USED FOR UNKNOWN INDICATION
     Dosage: 62.5 MCG/ACTUATION
     Route: 055

REACTIONS (12)
  - Acute respiratory distress syndrome [Unknown]
  - Wheezing [Unknown]
  - Bradycardia [Unknown]
  - Pharyngeal swelling [Unknown]
  - Hypersensitivity [Unknown]
  - Cardiovascular disorder [Unknown]
  - Respiratory distress [Unknown]
  - Cardio-respiratory arrest [Unknown]
  - Swollen tongue [Unknown]
  - Cough [Unknown]
  - Arrhythmia [Unknown]
  - Swelling face [Unknown]
